FAERS Safety Report 8858692 (Version 2)
Quarter: 2012Q4

REPORT INFORMATION
  Report Type: 
  Country: FR (occurrence: FR)
  Receive Date: 20121024
  Receipt Date: 20121102
  Transmission Date: 20130627
  Serious: No
  Sender: FDA-Public Use
  Company Number: FR-JNJFOC-20121007071

PATIENT
  Age: 60 None
  Sex: Female

DRUGS (3)
  1. DUROGESIC [Suspect]
     Indication: PAIN
     Route: 062
     Dates: start: 20120914, end: 20120928
  2. DUROGESIC [Suspect]
     Indication: PAIN
     Route: 062
     Dates: start: 20120928
  3. DUROGESIC [Suspect]
     Indication: PAIN
     Route: 062
     Dates: start: 20120829, end: 20120914

REACTIONS (3)
  - Product quality issue [Unknown]
  - Wrong technique in drug usage process [Unknown]
  - Drug intolerance [Unknown]
